FAERS Safety Report 5330975-8 (Version None)
Quarter: 2007Q2

REPORT INFORMATION
  Report Type: 
  Country: None (occurrence: None)
  Receive Date: 20070522
  Receipt Date: 20070511
  Transmission Date: 20071010
  Serious: Yes (Life-Threatening)
  Sender: FDA-Public Use
  Company Number: GB-ROCHE-497777

PATIENT
  Age: 78 Year

DRUGS (5)
  1. CAPECITABINE [Suspect]
     Indication: DRUG USE FOR UNKNOWN INDICATION
     Route: 048
  2. WARFARIN [Suspect]
     Indication: DEEP VEIN THROMBOSIS
     Route: 048
     Dates: start: 20011107
  3. CO-CODAMOL [Concomitant]
     Indication: PAIN
     Route: 048
     Dates: start: 20001220
  4. METFORMIN HCL [Concomitant]
     Route: 048
     Dates: start: 20070204
  5. PARACETAMOL [Concomitant]
     Indication: PAIN
     Route: 048
     Dates: start: 20070204

REACTIONS (2)
  - BREAST HAEMORRHAGE [None]
  - INTERNATIONAL NORMALISED RATIO INCREASED [None]
